FAERS Safety Report 12093141 (Version 1)
Quarter: 2016Q1

REPORT INFORMATION
  Report Type: Spontaneous
  Country: US (occurrence: US)
  Receive Date: 20160219
  Receipt Date: 20160219
  Transmission Date: 20160526
  Serious: No
  Sender: FDA-Public Use
  Company Number: US-TEVA-584701USA

PATIENT
  Sex: Female

DRUGS (2)
  1. AMPHETAMINE W/DEXTROAMPHETAMINE [Suspect]
     Active Substance: AMPHETAMINE SULFATE\DEXTROAMPHETAMINE
     Dosage: 30 MILLIGRAM DAILY;
     Route: 065
  2. AMPHETAMINE W/DEXTROAMPHETAMINE [Suspect]
     Active Substance: AMPHETAMINE SULFATE\DEXTROAMPHETAMINE
     Dosage: 40 MILLIGRAM DAILY;
     Route: 065

REACTIONS (6)
  - Product substitution issue [Unknown]
  - Drug ineffective [Unknown]
  - Distractibility [Unknown]
  - Disturbance in attention [Unknown]
  - Heart rate increased [Recovering/Resolving]
  - Headache [Recovering/Resolving]
